FAERS Safety Report 18652149 (Version 2)
Quarter: 2020Q4

REPORT INFORMATION
  Report Type: Spontaneous
  Country: US (occurrence: US)
  Receive Date: 20201222
  Receipt Date: 20201225
  Transmission Date: 20210114
  Serious: Yes (Hospitalization, Other)
  Sender: FDA-Public Use
  Company Number: US-B.I. PHARMACEUTICALS,INC./RIDGEFIELD-2020-BI-068736

PATIENT
  Age: 55 Year
  Sex: Female

DRUGS (1)
  1. JARDIANCE [Suspect]
     Active Substance: EMPAGLIFLOZIN
     Indication: TYPE 2 DIABETES MELLITUS
     Route: 065
     Dates: start: 201906

REACTIONS (9)
  - Brain injury [Unknown]
  - Bradycardia [Unknown]
  - Feeling cold [Recovered/Resolved]
  - COVID-19 pneumonia [Recovered/Resolved]
  - Heart rate abnormal [Recovered/Resolved]
  - Urine odour abnormal [Not Recovered/Not Resolved]
  - COVID-19 [Unknown]
  - Pneumonia [Unknown]
  - Cerebrovascular accident [Unknown]

NARRATIVE: CASE EVENT DATE: 201906
